FAERS Safety Report 11564393 (Version 1)
Quarter: 2015Q3

REPORT INFORMATION
  Report Type: Spontaneous
  Country: US (occurrence: US)
  Receive Date: 20150916
  Receipt Date: 20150916
  Transmission Date: 20151125
  Serious: No
  Sender: FDA-Public Use
  Company Number: US-ELI_LILLY_AND_COMPANY-US200903003454

PATIENT
  Age: 55 Year
  Sex: Female

DRUGS (3)
  1. VITAMINS /90003601/ [Concomitant]
     Active Substance: VITAMINS
  2. FORTEO [Suspect]
     Active Substance: TERIPARATIDE
     Indication: OSTEOPOROSIS
     Dosage: 20 UG, DAILY (1/D)
     Dates: start: 200901
  3. VITAMIN D/00107901/ [Concomitant]
     Dosage: 50000 U, WEEKLY (1/W)

REACTIONS (2)
  - Blood calcium increased [Recovered/Resolved]
  - Urine calcium [Not Recovered/Not Resolved]

NARRATIVE: CASE EVENT DATE: 20090129
